FAERS Safety Report 10192382 (Version 2)
Quarter: 2014Q2

REPORT INFORMATION
  Report Type: Spontaneous
  Country: US (occurrence: US)
  Receive Date: 20140523
  Receipt Date: 20140523
  Transmission Date: 20141212
  Serious: No
  Sender: FDA-Public Use
  Company Number: US-PFIZER INC-2014081238

PATIENT
  Age: 69 Year
  Sex: Female
  Weight: 51.7 kg

DRUGS (6)
  1. XELJANZ [Suspect]
     Indication: RHEUMATOID ARTHRITIS
     Dosage: 5 MG, 2X/DAY
     Route: 048
     Dates: start: 20140405
  2. DILTIAZEM [Concomitant]
     Dosage: UNK
  3. CELEBREX [Concomitant]
     Dosage: UNK
  4. PREVACID [Concomitant]
     Dosage: UNK
  5. PRISTIQ [Concomitant]
     Dosage: UNK
  6. RESTORIL [Concomitant]
     Dosage: UNK

REACTIONS (1)
  - Contusion [Unknown]
